FAERS Safety Report 9279604 (Version 1)
Quarter: 2013Q2

REPORT INFORMATION
  Report Type: Spontaneous
  Country: US (occurrence: US)
  Receive Date: 20130509
  Receipt Date: 20130509
  Transmission Date: 20140414
  Serious: No
  Sender: FDA-Public Use
  Company Number: US-B.I. PHARMACEUTICALS,INC./RIDGEFIELD-2013-BI-12747BP

PATIENT
  Age: 76 Year
  Sex: Female
  Weight: 52 kg

DRUGS (5)
  1. SPIRIVA [Suspect]
     Indication: CHRONIC OBSTRUCTIVE PULMONARY DISEASE
     Route: 055
     Dates: start: 20120424
  2. SPIRIVA [Suspect]
     Indication: EMPHYSEMA
  3. PROAIR HFA [Concomitant]
     Indication: EMPHYSEMA
     Route: 055
     Dates: start: 2011
  4. DIGOXIN [Concomitant]
     Indication: SUPRAVENTRICULAR TACHYCARDIA
     Dosage: 0.25 MG
     Route: 048
     Dates: start: 2000
  5. ATENOLOL [Concomitant]
     Indication: SUPRAVENTRICULAR TACHYCARDIA
     Dosage: 25 MG
     Route: 048
     Dates: start: 2000

REACTIONS (1)
  - Micturition frequency decreased [Recovered/Resolved]
